FAERS Safety Report 4858529-8 (Version None)
Quarter: 2005Q4

REPORT INFORMATION
  Report Type: 
  Country: None (occurrence: None)
  Receive Date: 20051219
  Receipt Date: 20051207
  Transmission Date: 20060501
  Serious: Yes (Hospitalization)
  Sender: FDA-Public Use
  Company Number: JP-JNJFOC-20051101268

PATIENT
  Sex: Female
  Weight: 44 kg

DRUGS (17)
  1. REMICADE [Suspect]
     Route: 042
  2. REMICADE [Suspect]
     Indication: RHEUMATOID ARTHRITIS
     Route: 042
  3. RHEUMATREX [Suspect]
     Route: 048
  4. RHEUMATREX [Suspect]
     Indication: RHEUMATOID ARTHRITIS
     Route: 048
  5. BACTRIM [Suspect]
  6. BACTRIM [Suspect]
  7. INDOMETHACIN [Concomitant]
     Indication: RHEUMATOID ARTHRITIS
     Route: 048
  8. MUCOSTA [Concomitant]
     Indication: GASTRITIS
     Route: 048
  9. DORNALIN [Concomitant]
     Indication: PERIPHERAL CIRCULATORY FAILURE
     Dosage: 40 RG
     Route: 048
  10. PREDNISOLONE [Concomitant]
     Indication: RHEUMATOID ARTHRITIS
     Route: 048
  11. MINOPEN [Concomitant]
     Indication: RHEUMATOID ARTHRITIS
     Route: 048
  12. ISCOTIN [Concomitant]
     Route: 048
  13. AMLODIPINE BESYLATE [Concomitant]
     Indication: HYPERTENSION
     Route: 048
  14. BASEN [Concomitant]
     Indication: DIABETES MELLITUS
     Route: 048
  15. TAKEPRON [Concomitant]
     Indication: REFLUX OESOPHAGITIS
     Route: 048
  16. ACTONEL [Concomitant]
     Indication: OSTEOPOROSIS
     Route: 048
  17. ADRENAL HORMONE PREPARATIONS [Concomitant]
     Indication: RHEUMATOID ARTHRITIS

REACTIONS (2)
  - LIVER FUNCTION TEST ABNORMAL [None]
  - PNEUMOCYSTIS JIROVECI PNEUMONIA [None]
